FAERS Safety Report 24207891 (Version 1)
Quarter: 2024Q3

REPORT INFORMATION
  Report Type: Spontaneous
  Country: US (occurrence: US)
  Receive Date: 20240814
  Receipt Date: 20240814
  Transmission Date: 20241016
  Serious: No
  Sender: TEVA
  Company Number: US-TEVA-VS-3227731

PATIENT
  Age: 80 Year
  Sex: Female

DRUGS (1)
  1. TERIPARATIDE [Suspect]
     Active Substance: TERIPARATIDE
     Indication: Product used for unknown indication
     Dosage: 600MCG/2.4ML VIA DAILY INJECTION
     Route: 065

REACTIONS (10)
  - Headache [Unknown]
  - Bone pain [Unknown]
  - Adverse reaction [Unknown]
  - Pain [Unknown]
  - Sleep disorder [Unknown]
  - Dizziness [Unknown]
  - Myalgia [Unknown]
  - Arthralgia [Unknown]
  - Stomatitis [Unknown]
  - Aphthous ulcer [Unknown]
